FAERS Safety Report 4930625-6 (Version None)
Quarter: 2006Q1

REPORT INFORMATION
  Report Type: 
  Country: None (occurrence: None)
  Receive Date: 20060227
  Receipt Date: 20060217
  Transmission Date: 20060701
  Serious: Yes (Other)
  Sender: FDA-Public Use
  Company Number: 221447

PATIENT
  Age: 44 Year
  Sex: Female

DRUGS (2)
  1. AVASTIN [Suspect]
     Indication: BREAST CANCER METASTATIC
     Dosage: Q2W
     Dates: start: 20051001
  2. ABRAXANE (PACLITAXEL) [Concomitant]

REACTIONS (1)
  - DIPLOPIA [None]
